FAERS Safety Report 12602013 (Version 1)
Quarter: 2016Q3

REPORT INFORMATION
  Report Type: Report from Study
  Country: AR (occurrence: AR)
  Receive Date: 20160728
  Receipt Date: 20160728
  Transmission Date: 20161109
  Serious: Yes (Hospitalization)
  Sender: FDA-Public Use
  Company Number: PHHO2012AR013655

PATIENT
  Age: 34 Year
  Sex: Male
  Weight: 70 kg

DRUGS (7)
  1. EVEROLIMUS [Suspect]
     Active Substance: EVEROLIMUS
     Indication: DIFFUSE LARGE B-CELL LYMPHOMA
     Dosage: 10 MG, QD
     Route: 048
     Dates: start: 20120730, end: 20120831
  2. LACTULOSE. [Concomitant]
     Active Substance: LACTULOSE
     Indication: CONSTIPATION
     Dosage: 10 ML, BID
     Route: 048
     Dates: start: 20120917, end: 20120918
  3. LEVOFLOXACIN. [Concomitant]
     Active Substance: LEVOFLOXACIN
     Indication: RESPIRATORY TRACT INFECTION
     Dosage: 500 MG, QD
     Route: 048
     Dates: start: 20120909, end: 20120915
  4. ACYCLOVIR. [Concomitant]
     Active Substance: ACYCLOVIR
     Indication: HERPES SIMPLEX
     Dosage: 400 MG, FIVE TIMES DAILY
     Route: 048
     Dates: start: 20120903, end: 20120908
  5. NYSTATIN. [Concomitant]
     Active Substance: NYSTATIN
     Indication: MUCOSAL INFLAMMATION
     Dosage: 15 ML, TID
     Route: 048
     Dates: start: 20120903, end: 20120906
  6. FILGRASTIM [Concomitant]
     Active Substance: FILGRASTIM
     Indication: NEUTROPENIA
     Dosage: 300 UG, UNK
     Route: 058
     Dates: start: 20120914
  7. DIOSMINA COMPLEX [Concomitant]
     Indication: HAEMORRHOIDS
     Dosage: 500 MG, QD
     Route: 048
     Dates: start: 20120914, end: 20120918

REACTIONS (1)
  - Febrile neutropenia [Recovered/Resolved]

NARRATIVE: CASE EVENT DATE: 20120918
